FAERS Safety Report 8914667 (Version 3)
Quarter: 2013Q1

REPORT INFORMATION
  Report Type: Spontaneous
  Country: US (occurrence: US)
  Receive Date: 20121119
  Receipt Date: 20130216
  Transmission Date: 20140127
  Serious: No
  Sender: FDA-Public Use
  Company Number: US-009507513-1211USA007217

PATIENT
  Sex: 0
  Weight: 55.33 kg

DRUGS (1)
  1. NEXPLANON [Suspect]
     Dosage: 1 ROD, EVERY THREE YEARS
     Route: 059
     Dates: start: 20121112, end: 20121112

REACTIONS (2)
  - Device difficult to use [Unknown]
  - No adverse event [Unknown]
